FAERS Safety Report 7655060-1 (Version None)
Quarter: 2011Q3

REPORT INFORMATION
  Report Type: 
  Country: None (occurrence: None)
  Receive Date: 20110728
  Receipt Date: 20110722
  Transmission Date: 20111222
  Serious: Yes (Other)
  Sender: FDA-Public Use
  Company Number: BR-001837

PATIENT
  Sex: Male
  Weight: 16 kg

DRUGS (3)
  1. CAPTOPRIL [Concomitant]
  2. FUROSEMIDE [Concomitant]
  3. NAGLAZYME [Suspect]
     Indication: MUCOPOLYSACCHARIDOSIS VI
     Dosage: (INTRAVENOUS DRIP)
     Route: 041
     Dates: start: 20090508

REACTIONS (2)
  - MUSCLE DISORDER [None]
  - SPINAL CORD COMPRESSION [None]
